FAERS Safety Report 6318081-7 (Version None)
Quarter: 2009Q3

REPORT INFORMATION
  Report Type: 
  Country: None (occurrence: None)
  Receive Date: 20090820
  Receipt Date: 20090820
  Transmission Date: 20100115
  Serious: Yes (Life-Threatening, Hospitalization)
  Sender: FDA-Public Use
  Company Number: None

PATIENT
  Age: 86 Year
  Sex: Male

DRUGS (2)
  1. ALTEPLASE [Suspect]
     Indication: CEREBROVASCULAR ACCIDENT
     Dosage: 75MG ONCE IV
     Route: 042
     Dates: start: 20070805, end: 20070805
  2. ALTEPLASE [Suspect]
     Indication: TRANSIENT ISCHAEMIC ATTACK
     Dosage: 75MG ONCE IV
     Route: 042
     Dates: start: 20070805, end: 20070805

REACTIONS (2)
  - HAEMORRHAGIC STROKE [None]
  - TRANSIENT ISCHAEMIC ATTACK [None]
